FAERS Safety Report 5917050-6 (Version None)
Quarter: 2008Q4

REPORT INFORMATION
  Report Type: 
  Country: None (occurrence: None)
  Receive Date: 20081014
  Receipt Date: 20081007
  Transmission Date: 20090506
  Serious: Yes (Other)
  Sender: FDA-Public Use
  Company Number: US-JNJFOC-20081002097

PATIENT
  Sex: Female
  Weight: 74.84 kg

DRUGS (3)
  1. FLEXERIL [Suspect]
     Indication: BACK PAIN
     Route: 048
  2. DURAGESIC-100 [Concomitant]
     Indication: BACK PAIN
     Route: 062
  3. AMBIEN [Concomitant]
     Indication: INSOMNIA
     Route: 048

REACTIONS (2)
  - INCORRECT DRUG ADMINISTRATION DURATION [None]
  - JOINT DISLOCATION [None]
